FAERS Safety Report 21022405 (Version 2)
Quarter: 2022Q3

REPORT INFORMATION
  Report Type: Spontaneous
  Country: DE (occurrence: DE)
  Receive Date: 20220629
  Receipt Date: 20220801
  Transmission Date: 20221026
  Serious: Yes (Other)
  Sender: FDA-Public Use
  Company Number: DE-NOVARTISPH-NVSC2022DE145149

PATIENT
  Age: 50 Year
  Sex: Female

DRUGS (3)
  1. BUPROPION [Suspect]
     Active Substance: BUPROPION
     Indication: Pain
     Dosage: 150 MG, QD, (REDUCE THE DOSAGE FROM 300MG TO 150MG AFTER A FEW WEEKS)
     Route: 065
  2. BUPROPION [Suspect]
     Active Substance: BUPROPION
     Indication: Depression
     Dosage: 300 MG
     Route: 065
     Dates: start: 20211026
  3. BUPROPION [Suspect]
     Active Substance: BUPROPION
     Indication: Fibromyalgia

REACTIONS (11)
  - Arrhythmia [Not Recovered/Not Resolved]
  - Blood potassium decreased [Recovered/Resolved]
  - Muscle spasms [Not Recovered/Not Resolved]
  - Blood thyroid stimulating hormone decreased [Unknown]
  - Therapeutic response unexpected [Recovering/Resolving]
  - Micturition urgency [Unknown]
  - Disturbance in attention [Not Recovered/Not Resolved]
  - Hepatic enzyme increased [Recovered/Resolved]
  - Increased appetite [Not Recovered/Not Resolved]
  - Dry mouth [Unknown]
  - Weight decreased [Not Recovered/Not Resolved]

NARRATIVE: CASE EVENT DATE: 20211101
